FAERS Safety Report 19110132 (Version 1)
Quarter: 2021Q2

REPORT INFORMATION
  Report Type: Spontaneous
  Country: US (occurrence: US)
  Receive Date: 20210409
  Receipt Date: 20210409
  Transmission Date: 20210717
  Serious: No
  Sender: FDA-Public Use
  Company Number: US-CADILA HEALTHCARE LIMITED-US-ZYDUS-057432

PATIENT

DRUGS (1)
  1. GABAPENTIN 600 MILLIGRAM TABLET [Suspect]
     Active Substance: GABAPENTIN
     Indication: PRODUCT USED FOR UNKNOWN INDICATION
     Dosage: 1200 MILLIGRAM, TID
     Route: 048

REACTIONS (6)
  - Seizure [Unknown]
  - Fatigue [Unknown]
  - Anger [Unknown]
  - Feeling abnormal [Unknown]
  - Diarrhoea [Unknown]
  - Personality disorder [Unknown]
